FAERS Safety Report 4972293-3 (Version None)
Quarter: 2006Q2

REPORT INFORMATION
  Report Type: 
  Country: None (occurrence: None)
  Receive Date: 20060413
  Receipt Date: 20060404
  Transmission Date: 20061013
  Serious: Yes (Other)
  Sender: FDA-Public Use
  Company Number: TR-ABBOTT-06P-161-0330247-00

PATIENT

DRUGS (3)
  1. REMIFENTANIL [Suspect]
     Indication: INDUCTION OF ANAESTHESIA
     Dosage: BOLUS
  2. THIOPENTAL SODIUM [Concomitant]
     Indication: INDUCTION OF ANAESTHESIA
     Dosage: 5 TO 7 MG/KG
  3. SUCCINYLCHOLINE [Concomitant]
     Indication: INDUCTION OF ANAESTHESIA
     Dosage: BOLUS

REACTIONS (2)
  - AIRWAY COMPLICATION OF ANAESTHESIA [None]
  - MUSCLE RIGIDITY [None]
